FAERS Safety Report 23428048 (Version 1)
Quarter: 2024Q1

REPORT INFORMATION
  Report Type: Spontaneous
  Country: US (occurrence: US)
  Receive Date: 20240122
  Receipt Date: 20240122
  Transmission Date: 20240409
  Serious: No
  Sender: FDA-Public Use
  Company Number: US-PFIZER INC-202400017313

PATIENT
  Age: 50 Year
  Sex: Male

DRUGS (1)
  1. INLYTA [Suspect]
     Active Substance: AXITINIB
     Dosage: 1 TABLET EVERY 12 HOURS BY MOUTH
     Route: 048
     Dates: start: 202308

REACTIONS (9)
  - Oral pain [Unknown]
  - Fatigue [Unknown]
  - Pain in extremity [Unknown]
  - Blister [Unknown]
  - Flushing [Unknown]
  - Hypertension [Unknown]
  - Taste disorder [Unknown]
  - Diarrhoea infectious [Unknown]
  - Therapeutic response unexpected [Unknown]
